FAERS Safety Report 4415032-7 (Version None)
Quarter: 2004Q3

REPORT INFORMATION
  Report Type: 
  Country: None (occurrence: None)
  Receive Date: 20040729
  Receipt Date: 20040722
  Transmission Date: 20050211
  Serious: Yes (Death)
  Sender: FDA-Public Use
  Company Number: 2004-07-1178

PATIENT
  Age: 41 Year
  Sex: Female

DRUGS (2)
  1. PEG-INTRON [Suspect]
     Indication: HEPATITIS C
     Dosage: 150 MCG QWK, SUBCUTANEOUS
     Route: 058
     Dates: start: 20020101, end: 20040101
  2. REBETOL [Suspect]
     Indication: HEPATITIS C
     Dosage: 1200  MG QD ORAL
     Route: 048
     Dates: start: 20020101, end: 20040101

REACTIONS (1)
  - DEATH [None]
